FAERS Safety Report 9538371 (Version 1)
Quarter: 2013Q3

REPORT INFORMATION
  Report Type: Spontaneous
  Country: US (occurrence: US)
  Receive Date: 20130920
  Receipt Date: 20130920
  Transmission Date: 20140515
  Serious: No
  Sender: FDA-Public Use
  Company Number: US-009507513-1309USA001540

PATIENT
  Sex: Female

DRUGS (2)
  1. NUVARING [Suspect]
     Dosage: 1 VAGINAL RING
     Route: 067
     Dates: start: 20130829
  2. JUNEL FE [Concomitant]
     Dosage: UNKNOWN

REACTIONS (1)
  - Lymphadenopathy [Not Recovered/Not Resolved]
